FAERS Safety Report 9644607 (Version 2)
Quarter: 2013Q4

REPORT INFORMATION
  Report Type: Spontaneous
  Country: BR (occurrence: BR)
  Receive Date: 20131025
  Receipt Date: 20131114
  Transmission Date: 20140711
  Serious: Yes (Other)
  Sender: FDA-Public Use
  Company Number: BR-AMGEN-BRASP2013075412

PATIENT
  Age: 64 Year
  Sex: Male
  Weight: 90 kg

DRUGS (7)
  1. ENBREL [Suspect]
     Indication: RHEUMATOID ARTHRITIS
     Dosage: 50 MG, ONCE A WEEK
     Route: 058
     Dates: start: 201305, end: 201310
  2. CALCIFEROL                         /00107901/ [Concomitant]
     Indication: RHEUMATOID ARTHRITIS
     Dosage: 500 IU, 1X/DAY
  3. GLUCOSAMINE SULFATE [Concomitant]
     Indication: RHEUMATOID ARTHRITIS
     Dosage: 1600 MG, 1X/DAY
  4. ARGININE [Concomitant]
     Indication: RHEUMATOID ARTHRITIS
     Dosage: 150 MG, 1X/DAY
  5. METHYLPREDNISOLONE [Concomitant]
     Indication: RHEUMATOID ARTHRITIS
     Dosage: 3 MG, DAILY
  6. VIMOVO [Concomitant]
     Indication: RHEUMATOID ARTHRITIS
     Dosage: 500 MG, 1X/DAY
  7. ATORVASTATIN [Concomitant]
     Indication: BLOOD CHOLESTEROL
     Dosage: 10 MG, DAILY

REACTIONS (11)
  - Urinary incontinence [Unknown]
  - Inflammation [Unknown]
  - Hypoaesthesia [Unknown]
  - Facial pain [Unknown]
  - Urinary tract disorder [Unknown]
  - Pulpitis dental [Unknown]
  - Pruritus [Unknown]
  - Tooth infection [Unknown]
  - Sinusitis [Unknown]
  - Pharyngitis [Unknown]
  - Herpes dermatitis [Unknown]
